FAERS Safety Report 17608240 (Version 10)
Quarter: 2020Q3

REPORT INFORMATION
  Report Type: Report from Study
  Country: US (occurrence: US)
  Receive Date: 20200331
  Receipt Date: 20200822
  Transmission Date: 20201102
  Serious: Yes (Hospitalization)
  Sender: FDA-Public Use
  Company Number: US-ACTELION-A-US2020-203750

PATIENT
  Age: 63 Year
  Sex: Female
  Weight: 48.98 kg

DRUGS (3)
  1. SILDENAFIL CITRATE. [Concomitant]
     Active Substance: SILDENAFIL CITRATE
  2. OPSUMIT [Suspect]
     Active Substance: MACITENTAN
     Indication: PULMONARY HYPERTENSION
     Dosage: 10 MG, QD
     Route: 048
  3. TYVASO [Suspect]
     Active Substance: TREPROSTINIL
     Indication: PRODUCT USED FOR UNKNOWN INDICATION
     Dosage: UNK
     Route: 048

REACTIONS (31)
  - Hypertension [Unknown]
  - Dry mouth [Unknown]
  - Pain [Unknown]
  - Insomnia [Unknown]
  - Weight decreased [Unknown]
  - Dizziness [Unknown]
  - Cardiac disorder [Unknown]
  - Chest pain [Unknown]
  - Salivary gland disorder [Unknown]
  - Disturbance in attention [Unknown]
  - Vulvovaginal swelling [Unknown]
  - Throat irritation [Unknown]
  - Productive cough [Unknown]
  - Decreased appetite [Unknown]
  - Hypotension [Unknown]
  - Cough [Unknown]
  - Headache [Unknown]
  - Pain in extremity [Not Recovered/Not Resolved]
  - Nasopharyngitis [Recovered/Resolved]
  - Cardiac failure [Unknown]
  - Memory impairment [Unknown]
  - Oedema peripheral [Not Recovered/Not Resolved]
  - Lung disorder [Unknown]
  - Dyspnoea [Unknown]
  - Pneumonia [Unknown]
  - Feeling jittery [Unknown]
  - Dysphonia [Unknown]
  - Anxiety [Unknown]
  - Wheezing [Unknown]
  - Nervousness [Unknown]
  - Oral candidiasis [Unknown]

NARRATIVE: CASE EVENT DATE: 202007
